FAERS Safety Report 20680073 (Version 2)
Quarter: 2022Q2

REPORT INFORMATION
  Report Type: Spontaneous
  Country: US (occurrence: US)
  Receive Date: 20220406
  Receipt Date: 20220427
  Transmission Date: 20220721
  Serious: Yes (Death, Hospitalization)
  Sender: FDA-Public Use
  Company Number: US-JNJFOC-20220402328

PATIENT
  Age: 72 Year
  Sex: Female
  Weight: 90.9 kg

DRUGS (4)
  1. OPSUMIT [Suspect]
     Active Substance: MACITENTAN
     Indication: Product used for unknown indication
     Route: 048
  2. UPTRAVI [Suspect]
     Active Substance: SELEXIPAG
     Indication: Pulmonary hypertension
     Route: 048
  3. ELIQUIS [Concomitant]
     Active Substance: APIXABAN
  4. TADALAFIL [Concomitant]
     Active Substance: TADALAFIL

REACTIONS (5)
  - Death [Fatal]
  - Respiratory disorder [Unknown]
  - Fluid retention [Unknown]
  - Pain in jaw [Unknown]
  - Headache [Unknown]

NARRATIVE: CASE EVENT DATE: 20220327
